FAERS Safety Report 15440462 (Version 1)
Quarter: 2018Q3

REPORT INFORMATION
  Report Type: Spontaneous
  Country: US (occurrence: US)
  Receive Date: 20180925
  Receipt Date: 20180925
  Transmission Date: 20181010
  Serious: Yes (Death, Hospitalization)
  Sender: FDA-Public Use
  Company Number: None

PATIENT
  Age: 13 Year
  Sex: Female
  Weight: 79.8 kg

DRUGS (6)
  1. PREDNISONE. [Suspect]
     Active Substance: PREDNISONE
     Dates: end: 20180727
  2. DAUNORUBICIN [Suspect]
     Active Substance: DAUNORUBICIN
     Dates: end: 20180725
  3. VINCRISTINE SULFATE. [Suspect]
     Active Substance: VINCRISTINE SULFATE
     Dates: end: 20180725
  4. CYTARABINE. [Suspect]
     Active Substance: CYTARABINE
     Dates: end: 20180719
  5. METHOTREXATE. [Suspect]
     Active Substance: METHOTREXATE
     Dates: end: 20180725
  6. ONCASPAR [Suspect]
     Active Substance: PEGASPARGASE
     Dates: end: 20180722

REACTIONS (22)
  - Intestinal obstruction [None]
  - Hypotension [None]
  - Pneumopericardium [None]
  - Chest discomfort [None]
  - Pyrexia [None]
  - Treatment failure [None]
  - Abdominal distension [None]
  - Flatulence [None]
  - Ileus [None]
  - Pancreatitis [None]
  - Chest pain [None]
  - Tachycardia [None]
  - Gastritis [None]
  - Abdominal pain [None]
  - Neutropenia [None]
  - Pseudomonas test positive [None]
  - Bronchopulmonary aspergillosis [None]
  - Menorrhagia [None]
  - Dyspnoea [None]
  - Sepsis [None]
  - Blast cells present [None]
  - Hyperglycaemia [None]

NARRATIVE: CASE EVENT DATE: 20180730
